FAERS Safety Report 5122822-4 (Version None)
Quarter: 2006Q4

REPORT INFORMATION
  Report Type: 
  Country: None (occurrence: None)
  Receive Date: 20061004
  Receipt Date: 20060919
  Transmission Date: 20070319
  Serious: Yes (Hospitalization)
  Sender: FDA-Public Use
  Company Number: A-JP2006-13034

PATIENT
  Age: 74 Year
  Sex: Male
  Weight: 55 kg

DRUGS (8)
  1. TRACLEER [Suspect]
     Indication: PULMONARY HYPERTENSION
     Dosage: 62.5 MG, BID, ORAL
     Route: 048
     Dates: start: 20060713, end: 20060907
  2. BERAPROST SODIUM                  (BERAPROST SODIUM) [Concomitant]
  3. WARFARIN SODIUM [Concomitant]
  4. BARNIDIPINE               (BARNIDIPINE) [Concomitant]
  5. ENALAPRIL MALEATE [Concomitant]
  6. URSODIOL [Concomitant]
  7. OXYGEN                         (OXYGEN) [Concomitant]
  8. ALLOPURINOL [Concomitant]

REACTIONS (6)
  - ALANINE AMINOTRANSFERASE INCREASED [None]
  - ASPARTATE AMINOTRANSFERASE INCREASED [None]
  - DECREASED APPETITE [None]
  - FATIGUE [None]
  - HEPATIC FUNCTION ABNORMAL [None]
  - PLATELET COUNT DECREASED [None]
